FAERS Safety Report 12435702 (Version 1)
Quarter: 2016Q2

REPORT INFORMATION
  Report Type: Spontaneous
  Country: US (occurrence: US)
  Receive Date: 20160603
  Receipt Date: 20160603
  Transmission Date: 20160815
  Serious: No
  Sender: FDA-Public Use
  Company Number: US-ROCHE-1622139

PATIENT
  Age: 54 Year
  Sex: Female
  Weight: 104.42 kg

DRUGS (2)
  1. XELODA [Suspect]
     Active Substance: CAPECITABINE
     Indication: MALIGNANT NIPPLE NEOPLASM
     Route: 048
     Dates: start: 20141227, end: 20150223
  2. XELODA [Suspect]
     Active Substance: CAPECITABINE
     Indication: BREAST CANCER METASTATIC
     Route: 048
     Dates: start: 20150309, end: 20150505

REACTIONS (6)
  - Myalgia [Unknown]
  - Hypoaesthesia [Recovered/Resolved]
  - Palmar-plantar erythrodysaesthesia syndrome [Recovered/Resolved]
  - Fatigue [Unknown]
  - Asthenia [Unknown]
  - Depressive symptom [Unknown]

NARRATIVE: CASE EVENT DATE: 20150224
